FAERS Safety Report 8987413 (Version 2)
Quarter: 2013Q1

REPORT INFORMATION
  Report Type: Spontaneous
  Country: FR (occurrence: FR)
  Receive Date: 20121227
  Receipt Date: 20130206
  Transmission Date: 20140127
  Serious: Yes (Other)
  Sender: FDA-Public Use
  Company Number: FR-ROCHE-1169389

PATIENT
  Age: 39 Year
  Sex: Female
  Weight: 50 kg

DRUGS (1)
  1. MABTHERA [Suspect]
     Indication: IDIOPATHIC THROMBOCYTOPENIC PURPURA
     Route: 042
     Dates: start: 20120411, end: 20120502

REACTIONS (12)
  - General physical condition abnormal [Recovered/Resolved]
  - Polyarthritis [Recovered/Resolved]
  - Pyrexia [Recovered/Resolved]
  - Conjunctivitis [Recovered/Resolved]
  - Polyneuropathy [Recovered/Resolved]
  - Abdominal pain [Recovered/Resolved]
  - Hyponatraemia [Unknown]
  - Eosinophilia [Unknown]
  - Hypotension [Unknown]
  - Nausea [Unknown]
  - Hypogammaglobulinaemia [Unknown]
  - Adrenal insufficiency [Unknown]
